FAERS Safety Report 7600644-X (Version None)
Quarter: 2011Q3

REPORT INFORMATION
  Report Type: 
  Country: None (occurrence: None)
  Receive Date: 20110708
  Receipt Date: 20110708
  Transmission Date: 20111222
  Serious: Yes (Congenital Anomaly)
  Sender: FDA-Public Use
  Company Number: None

PATIENT
  Sex: Male
  Weight: 82.1011 kg

DRUGS (1)
  1. TAMSULOSIN HCL [Suspect]
     Indication: NEPHROLITHIASIS
     Dosage: 0-4 MG MORNING AFTERNOON
     Dates: start: 20110519

REACTIONS (2)
  - LOSS OF LIBIDO [None]
  - ERECTILE DYSFUNCTION [None]
